FAERS Safety Report 7547486-1 (Version None)
Quarter: 2011Q2

REPORT INFORMATION
  Report Type: 
  Country: None (occurrence: None)
  Receive Date: 20110614
  Receipt Date: 20110610
  Transmission Date: 20111010
  Serious: Yes (Hospitalization)
  Sender: FDA-Public Use
  Company Number: US-US-EMD SERONO, INC.-232730J09USA

PATIENT
  Sex: Female

DRUGS (1)
  1. REBIF [Suspect]
     Indication: SECONDARY PROGRESSIVE MULTIPLE SCLEROSIS
     Route: 058
     Dates: start: 20090130, end: 20090801

REACTIONS (5)
  - STAPHYLOCOCCAL INFECTION [None]
  - PULMONARY CONGESTION [None]
  - CELLULITIS [None]
  - NASOPHARYNGITIS [None]
  - MALAISE [None]
